FAERS Safety Report 5422253-3 (Version None)
Quarter: 2007Q3

REPORT INFORMATION
  Report Type: 
  Country: None (occurrence: None)
  Receive Date: 20070822
  Receipt Date: 20070814
  Transmission Date: 20080115
  Serious: Yes (Death, Hospitalization)
  Sender: FDA-Public Use
  Company Number: FR-AVENTIS-200712365FR

PATIENT
  Age: 17 Year
  Sex: Male

DRUGS (16)
  1. FLAGYL [Suspect]
     Route: 042
     Dates: start: 20070511, end: 20070524
  2. CERUBIDINE [Suspect]
     Route: 042
     Dates: start: 20070424, end: 20070424
  3. ARACYTINE [Suspect]
     Route: 042
     Dates: start: 20070424, end: 20070424
  4. ARACYTINE [Suspect]
     Route: 042
     Dates: start: 20070516, end: 20070518
  5. ARACYTINE [Suspect]
     Route: 037
     Dates: start: 20070427, end: 20070509
  6. NOVANTRONE [Suspect]
     Route: 042
     Dates: start: 20070425, end: 20070429
  7. AMSIDINE [Suspect]
     Route: 042
     Dates: start: 20070516, end: 20070518
  8. TAZOCILLINE [Suspect]
     Route: 042
     Dates: start: 20070430, end: 20070520
  9. AMIKLIN                            /00391001/ [Suspect]
     Route: 042
     Dates: start: 20070520, end: 20070523
  10. VFEND [Suspect]
     Route: 042
     Dates: start: 20070516, end: 20070519
  11. CANCIDAS [Suspect]
     Route: 042
     Dates: start: 20070519, end: 20070523
  12. FORTUM                             /00559702/ [Suspect]
     Route: 042
     Dates: start: 20070520, end: 20070524
  13. TIENAM [Suspect]
     Route: 042
     Dates: start: 20070518, end: 20070520
  14. METHOTREXATE [Suspect]
     Route: 037
     Dates: start: 20070427, end: 20070506
  15. HYDREA [Suspect]
     Route: 048
     Dates: start: 20070423, end: 20070425
  16. PURINETHOL [Suspect]
     Route: 048
     Dates: start: 20070423, end: 20070423

REACTIONS (14)
  - ACUTE MYELOID LEUKAEMIA RECURRENT [None]
  - ARRHYTHMIA [None]
  - BRONCHOPULMONARY ASPERGILLOSIS [None]
  - CARDIO-RESPIRATORY ARREST [None]
  - CEREBELLAR SYNDROME [None]
  - COMA [None]
  - CONVULSION [None]
  - DECEREBRATION [None]
  - EYE MOVEMENT DISORDER [None]
  - HYPERTHERMIA [None]
  - LIVER DISORDER [None]
  - MYDRIASIS [None]
  - SINUS BRADYCARDIA [None]
  - VENTRICULAR FIBRILLATION [None]
